FAERS Safety Report 22606825 (Version 1)
Quarter: 2023Q2

REPORT INFORMATION
  Report Type: Spontaneous
  Country: CN (occurrence: CN)
  Receive Date: 20230615
  Receipt Date: 20230615
  Transmission Date: 20230722
  Serious: Yes (Other)
  Sender: FDA-Public Use
  Company Number: CN-Merck Healthcare KGaA-9407556

PATIENT
  Age: 62 Year
  Sex: Male
  Weight: 54 kg

DRUGS (8)
  1. ERBITUX [Suspect]
     Active Substance: CETUXIMAB
     Indication: Colon cancer
     Dosage: 100 MG, SINGLE
     Route: 041
     Dates: start: 20221025, end: 20221025
  2. ERBITUX [Suspect]
     Active Substance: CETUXIMAB
     Dosage: 300 MG, SINGLE
     Route: 041
     Dates: start: 20221025, end: 20221025
  3. IRINOTECAN HYDROCHLORIDE [Suspect]
     Active Substance: IRINOTECAN HYDROCHLORIDE
     Indication: Colon cancer
     Dosage: 0.2 G, SINGLE
     Route: 041
     Dates: start: 20221026, end: 20221026
  4. OXALIPLATIN [Suspect]
     Active Substance: OXALIPLATIN
     Indication: Colon cancer
     Dosage: 24 ML, SINGLE
     Route: 041
     Dates: start: 20221026, end: 20221026
  5. SODIUM CHLORIDE [Concomitant]
     Active Substance: SODIUM CHLORIDE
     Indication: Medication dilution
     Dosage: 230 ML, SINGLE
     Route: 041
     Dates: start: 20221025, end: 20221025
  6. SODIUM CHLORIDE [Concomitant]
     Active Substance: SODIUM CHLORIDE
     Dosage: 440 ML, SINGLE
     Route: 041
     Dates: start: 20221025, end: 20221025
  7. DEXTROSE [Concomitant]
     Active Substance: DEXTROSE\DEXTROSE MONOHYDRATE
     Indication: Medication dilution
     Dosage: 250 ML, SINGLE
     Route: 041
     Dates: start: 20221026, end: 20221026
  8. DEXTROSE [Concomitant]
     Active Substance: DEXTROSE\DEXTROSE MONOHYDRATE
     Dosage: 500 ML, SINGLE
     Route: 041
     Dates: start: 20221026, end: 20221026

REACTIONS (3)
  - Haemoglobin decreased [Recovering/Resolving]
  - Neutrophil count decreased [Recovering/Resolving]
  - White blood cell count decreased [Recovering/Resolving]

NARRATIVE: CASE EVENT DATE: 20221101
